FAERS Safety Report 16410790 (Version 1)
Quarter: 2019Q2

REPORT INFORMATION
  Report Type: Spontaneous
  Country: TR (occurrence: TR)
  Receive Date: 20190610
  Receipt Date: 20190610
  Transmission Date: 20190711
  Serious: Yes (Life-Threatening)
  Sender: FDA-Public Use
  Company Number: TR-JNJFOC-20190601835

PATIENT
  Age: 3 Year
  Sex: Female

DRUGS (5)
  1. IFOSFAMIDE. [Concomitant]
     Active Substance: IFOSFAMIDE
     Indication: PRIMITIVE NEUROECTODERMAL TUMOUR
     Route: 065
     Dates: start: 201105
  2. ETOPOSIDE. [Concomitant]
     Active Substance: ETOPOSIDE
     Indication: PRIMITIVE NEUROECTODERMAL TUMOUR
     Route: 065
     Dates: start: 201105
  3. ADRIAMYCIN [Suspect]
     Active Substance: DOXORUBICIN HYDROCHLORIDE
     Indication: PRIMITIVE NEUROECTODERMAL TUMOUR
     Route: 065
     Dates: start: 201105
  4. CYCLOPHOSPHAMIDE. [Concomitant]
     Active Substance: CYCLOPHOSPHAMIDE
     Indication: PRIMITIVE NEUROECTODERMAL TUMOUR
     Route: 065
     Dates: start: 201105
  5. VINCRISTINE [Concomitant]
     Active Substance: VINCRISTINE
     Indication: PRIMITIVE NEUROECTODERMAL TUMOUR
     Route: 065
     Dates: start: 201105

REACTIONS (3)
  - Cardiotoxicity [Unknown]
  - Off label use [Unknown]
  - Product use in unapproved indication [Unknown]
